FAERS Safety Report 22807867 (Version 7)
Quarter: 2023Q4

REPORT INFORMATION
  Report Type: Other
  Country: DE (occurrence: DE)
  Receive Date: 20230810
  Receipt Date: 20231122
  Transmission Date: 20240109
  Serious: Yes (Life-Threatening, Other)
  Sender: FDA-Public Use
  Company Number: DE-MACLEODS PHARMACEUTICALS US LTD-MAC2018018675

PATIENT

DRUGS (73)
  1. LIDOCAINE [Suspect]
     Active Substance: LIDOCAINE
     Indication: Local anaesthesia
     Dosage: UNK
     Route: 058
     Dates: start: 20230913, end: 20230913
  2. NORTRIPTYLINE [Suspect]
     Active Substance: NORTRIPTYLINE
     Indication: Coronary artery disease
     Dosage: UNK ( ENDOTRACHEOPULMONARY INSTILLATION, SUSPENSION)
     Route: 042
     Dates: start: 20000913, end: 20000913
  3. NORTRIPTYLINE [Suspect]
     Active Substance: NORTRIPTYLINE
     Dosage: 75 MILLIGRAM, QD INJECTION
     Route: 042
     Dates: start: 20000913, end: 20000913
  4. OMEPRAZOLE [Suspect]
     Active Substance: OMEPRAZOLE
     Indication: Prophylaxis against gastrointestinal ulcer
     Dosage: 20 MILLIGRAM, QD (TABLET)
     Route: 048
     Dates: start: 20000820, end: 20000917
  5. OMEPRAZOLE [Suspect]
     Active Substance: OMEPRAZOLE
     Dosage: 20 MILLIGRAM, QD
     Route: 048
     Dates: start: 20000820, end: 20000917
  6. ASPIRIN [Suspect]
     Active Substance: ASPIRIN
     Indication: Coagulopathy
     Dosage: 100 MILLIGRAM, QD (ACETYLSALICYLIC ACID)
     Route: 048
     Dates: start: 20000828, end: 20000831
  7. ASPIRIN [Suspect]
     Active Substance: ASPIRIN
     Indication: Coagulopathy
     Dosage: 100 MILLIGRAM, QD, ASPIRIN 100 MG (ACETYLSALICYLIC ACID), TABLET
     Route: 048
     Dates: start: 20000914, end: 20000917
  8. DIAZEPAM [Suspect]
     Active Substance: DIAZEPAM
     Indication: Sedation
     Dosage: UNK, ( ENDOTRACHEOPULMONARY INSTILLATION, SUSPENSION, INJECTION, DESTIN, POWDER FOR SUSPENSION))
     Route: 042
     Dates: start: 20000913, end: 20000913
  9. DIAZEPAM [Suspect]
     Active Substance: DIAZEPAM
     Indication: Sedative therapy
  10. PLAVIX [Suspect]
     Active Substance: CLOPIDOGREL BISULFATE
     Indication: Thrombosis prophylaxis
     Dosage: 1 DOSAGE FORM, QD, PLAVIX (CLOPIDOGREL,  POWDER FOR INFUSION)
     Route: 048
     Dates: start: 20000913, end: 20000917
  11. PLAVIX [Suspect]
     Active Substance: CLOPIDOGREL BISULFATE
     Indication: Coagulopathy
     Dosage: 4 DOSAGE FORM
     Route: 065
  12. PLAVIX [Suspect]
     Active Substance: CLOPIDOGREL BISULFATE
     Dosage: 1 DOSAGE FORM, QD (75 MG, 1 DOSE DAILY, POWDER FOR INFUSION)
     Route: 048
     Dates: start: 20000913, end: 20000917
  13. PLAVIX [Suspect]
     Active Substance: CLOPIDOGREL BISULFATE
     Dosage: 75 MILLIGRAM, QD TABLET
     Route: 048
     Dates: start: 20000913, end: 20000917
  14. VIOXX [Suspect]
     Active Substance: ROFECOXIB
     Indication: Rheumatic disorder
     Dosage: 25 MILLIGRAM, QD, VIOXX (ROFECOXIB)
     Route: 048
     Dates: start: 20000907, end: 20000917
  15. CLONIDINE [Suspect]
     Active Substance: CLONIDINE
     Indication: Coronary artery disease
     Dosage: UNK, CATAPRESAN (CLONIDINE)
     Route: 042
     Dates: start: 20000913, end: 20000913
  16. CLONIDINE [Suspect]
     Active Substance: CLONIDINE
     Indication: Hypertension
     Dosage: UNK
     Route: 065
  17. XYLOCAINE [Suspect]
     Active Substance: LIDOCAINE HYDROCHLORIDE
     Indication: Local anaesthesia
     Dosage: UNK, XYLOCAINE (LIDOCAINE HYDROCHLORIDE)
     Route: 058
     Dates: start: 20000913, end: 20000913
  18. UNSPECIFIED INGREDIENT [Suspect]
     Active Substance: UNSPECIFIED INGREDIENT
     Indication: Coronary artery disease
     Dosage: UNK
     Route: 042
     Dates: start: 20000913, end: 20000913
  19. LORMETAZEPAM [Suspect]
     Active Substance: LORMETAZEPAM
     Indication: Sedation
     Dosage: 2 DOSAGE FORM, QD, NOCTAMID (LORMETAZEPAM) (2 DF, 1 DOSE DAILY DOSE UNIT: DOSAGE FORM) (1 DOSE DAILY
     Route: 048
     Dates: start: 20000913, end: 20000913
  20. LORMETAZEPAM [Suspect]
     Active Substance: LORMETAZEPAM
     Indication: Sedative therapy
     Dosage: 2 DOSAGE FORM
     Route: 065
  21. GLYBURIDE [Suspect]
     Active Substance: GLYBURIDE
     Indication: Diabetes mellitus
     Dosage: 3 DOSAGE FORM ( POWDER FOR INFUSION)
     Route: 048
     Dates: start: 20000820, end: 20000917
  22. NOREPINEPHRINE [Suspect]
     Active Substance: NOREPINEPHRINE
     Indication: Coronary artery disease
     Dosage: 3 DOSAGE FORM
     Route: 042
     Dates: start: 20000913, end: 20000913
  23. NOVALGIN (METAMIZOLE SODIUM) [Suspect]
     Active Substance: METAMIZOLE SODIUM
     Indication: Pain
     Dosage: 20 DROP, QD, NOVALGIN (METAMIZOLE SODIUM), EAR/EYE/NOSE DROPS, SOLUTION
     Route: 048
     Dates: start: 20000820, end: 20000917
  24. NOVALGIN (METAMIZOLE SODIUM) [Suspect]
     Active Substance: METAMIZOLE SODIUM
     Indication: General symptom
     Dosage: 560 DROP
     Route: 048
  25. CLONIDINE HYDROCHLORIDE [Suspect]
     Active Substance: CLONIDINE HYDROCHLORIDE
     Indication: Coronary artery disease
     Dosage: UNK
     Route: 042
     Dates: start: 20000913, end: 20000913
  26. CLONIDINE HYDROCHLORIDE [Suspect]
     Active Substance: CLONIDINE HYDROCHLORIDE
     Indication: Hypertension
     Dosage: UNK
     Route: 042
  27. ESTRIOL [Suspect]
     Active Substance: ESTRIOL
     Indication: Vulvovaginal disorder
     Dosage: 1 DOSAGE FORM, QD, ORTHO-GYNEST (ESTRIOL) (PREVIOUSLY INGREDIENT THAT WAS CODED IS ESTRIOL SUCCINATE
     Route: 067
     Dates: start: 20000820, end: 20000906
  28. DALTEPARIN SODIUM [Suspect]
     Active Substance: DALTEPARIN SODIUM
     Indication: Coagulopathy
     Dosage: UNK, FRAGMIN P (HEPARIN-FRACTION, SODIUM SALT)
     Route: 058
     Dates: start: 20000820, end: 20000917
  29. DALTEPARIN SODIUM [Suspect]
     Active Substance: DALTEPARIN SODIUM
     Indication: Thrombosis prophylaxis
     Dosage: UNK
     Route: 065
  30. DALTEPARIN SODIUM [Suspect]
     Active Substance: DALTEPARIN SODIUM
     Dosage: UNK
     Route: 058
     Dates: start: 20000820, end: 20000917
  31. DALTEPARIN SODIUM [Suspect]
     Active Substance: DALTEPARIN SODIUM
     Dosage: UNK
  32. CLEMASTINE FUMARATE [Suspect]
     Active Substance: CLEMASTINE FUMARATE
     Indication: Pemphigoid
     Dosage: 4 DOSAGE FORM, QD, TAVEGIL (CLEMASTINE) (PREVIOUSLY INGREDIENT THAT WAS CODED IS CLEMASTINE OR CLEMA
     Route: 048
     Dates: start: 20000820, end: 20000828
  33. CLEMASTINE FUMARATE [Suspect]
     Active Substance: CLEMASTINE FUMARATE
     Dosage: 2 DOSAGE FORM, QD
     Route: 048
     Dates: start: 20000820, end: 20000828
  34. PREDNISOLONE [Suspect]
     Active Substance: PREDNISOLONE
     Indication: Dermatitis bullous
     Dosage: 60 MILLIGRAM, QD
     Route: 048
     Dates: start: 20000820, end: 20000917
  35. PREDNISOLONE [Suspect]
     Active Substance: PREDNISOLONE
     Indication: Pemphigoid
     Dosage: 80 MILLIGRAM, QD (TABLET)
     Route: 048
  36. PREDNISOLONE [Suspect]
     Active Substance: PREDNISOLONE
     Dosage: 50 MILLIGRAM, QD
     Route: 048
  37. PREDNISOLONE [Suspect]
     Active Substance: PREDNISOLONE
     Dosage: 40 MILLIGRAM, QD (TABLET)
     Route: 048
  38. PREDNISOLONE [Suspect]
     Active Substance: PREDNISOLONE
     Dosage: 60 MILLIGRAM, QD
     Route: 048
  39. PREDNISOLONE [Suspect]
     Active Substance: PREDNISOLONE
     Dosage: UNK
     Route: 048
     Dates: start: 20000820, end: 20000917
  40. PREDNISOLONE [Suspect]
     Active Substance: PREDNISOLONE
     Dosage: 60 MILLIGRAM, QD
     Route: 048
  41. PREDNISOLONE [Suspect]
     Active Substance: PREDNISOLONE
     Dosage: 80 MILLIGRAM, QD (TABLET)
     Route: 048
  42. PREDNISOLONE [Suspect]
     Active Substance: PREDNISOLONE
     Dosage: 50 MILLIGRAM, QD
     Route: 048
  43. PREDNISOLONE [Suspect]
     Active Substance: PREDNISOLONE
     Dosage: 40 MILLIGRAM, QD (TABLET)
     Route: 048
  44. INSULIN NOS [Suspect]
     Active Substance: INSULIN NOS
     Indication: Diabetes mellitus
     Dosage: UNK (SUBCUTANEOUS EXCEPT ON 13 SEP 2000 WHEN GIVEN INTRAVENOUSLY;  POWDER FOR SUSPENSION)
     Route: 058
     Dates: start: 20000820, end: 20000917
  45. INSULIN NOS [Suspect]
     Active Substance: INSULIN NOS
     Dosage: UNK (SUBCUTANEOUS EXCEPT ON 13 SEP 2000 WHEN GIVEN INTRAVENOUSLY;  POWDER FOR SUSPENSION)
     Route: 042
     Dates: start: 20000913, end: 20000913
  46. TORSEMIDE [Suspect]
     Active Substance: TORSEMIDE
     Indication: Cardiac failure
     Dosage: 5 MILLIGRAM, QD, UNAT (TORASEMIDE), TABLET
     Route: 048
     Dates: start: 20000820, end: 20000917
  47. TORSEMIDE [Suspect]
     Active Substance: TORSEMIDE
     Dosage: 140 MILLIGRAM
     Route: 065
  48. ISOSORBIDE MONONITRATE [Suspect]
     Active Substance: ISOSORBIDE MONONITRATE
     Indication: Angina pectoris
     Dosage: 1 DOSAGE FORM, QD, MONO MACK (ISOSORBIDE MONONITRATE) (POWDER FOR INFUSION)
     Route: 048
     Dates: start: 20000820, end: 20000917
  49. MOLSIDOMINE [Suspect]
     Active Substance: MOLSIDOMINE
     Indication: Coronary artery disease
     Dosage: 8 MILLIGRAM, QD, 1 DOSAGE FORM DAILY
     Route: 048
     Dates: start: 20000820, end: 20000914
  50. NOREPINEPHRINE [Suspect]
     Active Substance: NOREPINEPHRINE
     Indication: Coronary artery disease
     Dosage: UNK
     Route: 042
     Dates: start: 20000913, end: 20000913
  51. FENTANYL [Suspect]
     Active Substance: FENTANYL\FENTANYL CITRATE
     Indication: Pain
     Dosage: 1 DOSAGE FORM, DUROGESIC (FENTANYL ) TRANSDERMAL PATCH
     Route: 062
     Dates: start: 20000820, end: 20000916
  52. FENTANYL [Suspect]
     Active Substance: FENTANYL\FENTANYL CITRATE
     Indication: Dermatitis bullous
     Dosage: 50 MICROGRAM, Q.H. (MICROGRAMS PER INHALATION, 72 QH)
     Route: 062
  53. FENTANYL [Suspect]
     Active Substance: FENTANYL\FENTANYL CITRATE
     Dosage: 125 MICROGRAM, Q.H. (MICROGRAMS PER INHALATION)
     Route: 062
  54. FENTANYL [Suspect]
     Active Substance: FENTANYL\FENTANYL CITRATE
     Dosage: 150 MICROGRAM, Q.H. (MICROGRAMS PER INHALATION, 72 QH)
     Route: 062
     Dates: start: 20000820, end: 20000916
  55. FENTANYL [Suspect]
     Active Substance: FENTANYL\FENTANYL CITRATE
     Dosage: UNK
     Route: 048
     Dates: start: 20000820, end: 20000917
  56. DEXTROSE [Concomitant]
     Active Substance: DEXTROSE\DEXTROSE MONOHYDRATE
     Indication: Cardiovascular disorder
     Dosage: UNK
     Route: 042
     Dates: start: 20000913, end: 20000913
  57. DEXTROSE [Concomitant]
     Active Substance: DEXTROSE\DEXTROSE MONOHYDRATE
     Dosage: UNK
     Route: 065
  58. COTRIM [Concomitant]
     Active Substance: SULFAMETHOXAZOLE\TRIMETHOPRIM
     Indication: Urinary tract infection
     Dosage: 1 DOSAGE FORM, QD, COTRIM
     Route: 048
     Dates: start: 20000916, end: 20000917
  59. CALCIUM GLUCONATE [Concomitant]
     Active Substance: CALCIUM GLUCONATE
     Indication: Osteoporosis
     Dosage: 1 DOSAGE FORM, QD, CA LACTOGLUCONATE/ CARBONATE
     Route: 048
     Dates: start: 20000820, end: 20000917
  60. RINGERS SOLUTION [Concomitant]
     Active Substance: CALCIUM CHLORIDE\POTASSIUM CHLORIDE\SODIUM CHLORIDE
     Indication: Electrolyte depletion
     Dosage: UNK, RINGER^S SOLUTION (SODIUM CHLORIDE COMPOUND INJECTION)
     Route: 042
     Dates: start: 20000913, end: 20000914
  61. OMEPRAZOLE [Concomitant]
     Active Substance: OMEPRAZOLE
     Indication: Prophylaxis against gastrointestinal ulcer
     Dosage: 20 MILLIGRAM, QD, ANTRAMUPS (OMEPRAZOLE MAGNESIUM)
     Route: 048
     Dates: start: 20000820, end: 20000917
  62. MOLSIDOMINE [Concomitant]
     Active Substance: MOLSIDOMINE
     Indication: Coronary artery disease
     Dosage: 1 DOSAGE FORM, QD, CORVATON RETARD (MOLSIDOMINE)
     Route: 048
     Dates: start: 20000820, end: 20000914
  63. Baxter Healthcare Ringers [Concomitant]
     Indication: Electrolyte depletion
     Dosage: UNK
     Route: 042
     Dates: start: 20000913, end: 20000914
  64. CALCIUM CHLORIDE [Concomitant]
     Active Substance: CALCIUM CHLORIDE
     Indication: Electrolyte depletion
     Dosage: UNK
     Route: 065
  65. CALCIUM CHLORIDE [Concomitant]
     Active Substance: CALCIUM CHLORIDE
     Indication: Fluid retention
     Dosage: UNK (INTRAVENOUS BOLUS)
     Route: 042
     Dates: start: 20000913, end: 20000914
  66. CALCIUM CHLORIDE [Concomitant]
     Active Substance: CALCIUM CHLORIDE
     Indication: Osteoporosis
     Dosage: UNK
     Route: 065
     Dates: start: 20000820, end: 20000917
  67. POTASSIUM CHLORIDE [Concomitant]
     Active Substance: POTASSIUM CHLORIDE
     Indication: Electrolyte depletion
     Dosage: UNK; POWDER FOR SUSPENSION
     Route: 042
     Dates: start: 20000913, end: 20000914
  68. POTASSIUM CHLORIDE [Concomitant]
     Active Substance: POTASSIUM CHLORIDE
     Indication: Fluid retention
     Dosage: UNK; POWDER FOR SUSPENSION
     Route: 065
  69. POTASSIUM CHLORIDE [Concomitant]
     Active Substance: POTASSIUM CHLORIDE
     Dosage: UNK INJECTION
     Route: 042
     Dates: start: 20000913, end: 20000914
  70. POTASSIUM CHLORIDE [Concomitant]
     Active Substance: POTASSIUM CHLORIDE
     Dosage: UNK INJECTION
     Route: 065
  71. SODIUM CHLORIDE [Concomitant]
     Active Substance: SODIUM CHLORIDE
     Indication: Electrolyte depletion
     Dosage: UNK
     Route: 042
     Dates: start: 20000913, end: 20000914
  72. CALCIUM CHLORIDE [Concomitant]
     Active Substance: CALCIUM CHLORIDE
     Indication: Electrolyte depletion
     Dosage: UNK
     Route: 042
     Dates: start: 20000913, end: 20000914
  73. CALCIUM [Concomitant]
     Active Substance: CALCIUM
     Indication: Osteoporosis
     Dosage: 1 DOSAGE FORM, QD (CALCIUM CITRATE)
     Route: 048
     Dates: start: 20000820, end: 20000917

REACTIONS (7)
  - Mucosal erosion [Recovered/Resolved]
  - Genital erosion [Recovered/Resolved]
  - Toxic epidermal necrolysis [Recovered/Resolved]
  - Blister [Recovered/Resolved]
  - Mouth ulceration [Recovered/Resolved]
  - Conjunctivitis [Recovered/Resolved]
  - Erythema [Recovered/Resolved]

NARRATIVE: CASE EVENT DATE: 20000916
